FAERS Safety Report 6130628-2 (Version None)
Quarter: 2009Q1

REPORT INFORMATION
  Report Type: 
  Country: None (occurrence: None)
  Receive Date: 20090325
  Receipt Date: 20090316
  Transmission Date: 20090719
  Serious: Yes (Other)
  Sender: FDA-Public Use
  Company Number: GB-TEVA-188011ISR

PATIENT
  Age: 65 Year
  Sex: Male
  Weight: 77 kg

DRUGS (1)
  1. LISINOPRIL [Suspect]
     Indication: HYPERTENSION
     Route: 048
     Dates: start: 20071017, end: 20090113

REACTIONS (2)
  - GLOMERULAR FILTRATION RATE ABNORMAL [None]
  - TUBULOINTERSTITIAL NEPHRITIS [None]
